FAERS Safety Report 7806091-X (Version None)
Quarter: 2011Q4

REPORT INFORMATION
  Report Type: 
  Country: None (occurrence: None)
  Receive Date: 20111011
  Receipt Date: 20111005
  Transmission Date: 20120403
  Serious: No
  Sender: FDA-Public Use
  Company Number: US-PFIZER INC-2011238956

PATIENT
  Sex: Female
  Weight: 113 kg

DRUGS (10)
  1. PRISTIQ [Suspect]
     Indication: DEPRESSION
     Dosage: 50 MG, DAILY
     Route: 048
     Dates: start: 20100101
  2. CYCLOBENZAPRINE HYDROCHLORIDE [Concomitant]
     Indication: MUSCLE SPASMS
     Dosage: 10 MG, DAILY
  3. CETIRIZINE HYDROCHLORIDE [Concomitant]
     Indication: HYPERSENSITIVITY
     Dosage: UNK
  4. NEURONTIN [Concomitant]
     Indication: FIBROMYALGIA
     Dosage: 300 MG, 3X/DAY
  5. FLUTICASONE PROPIONATE [Concomitant]
     Indication: ASTHMA
     Dosage: 44 UG, UNK
  6. VENTOLIN HFA [Concomitant]
     Indication: ASTHMA
     Dosage: UNK
  7. PRISTIQ [Suspect]
     Indication: ANXIETY
  8. METFORMIN [Concomitant]
     Indication: TYPE 2 DIABETES MELLITUS
     Dosage: 1000 MG, DAILY
  9. LISINOPRIL [Concomitant]
     Indication: HYPERTENSION
     Dosage: 40 MG, DAILY
  10. PLAQUENIL [Concomitant]
     Indication: RHEUMATOID ARTHRITIS
     Dosage: 200 MG, DAILY

REACTIONS (1)
  - DRUG INEFFECTIVE [None]
